FAERS Safety Report 22639329 (Version 3)
Quarter: 2024Q4

REPORT INFORMATION
  Report Type: Spontaneous
  Country: DE (occurrence: DE)
  Receive Date: 20230626
  Receipt Date: 20241223
  Transmission Date: 20250114
  Serious: Yes (Hospitalization, Other)
  Sender: AUROBINDO
  Company Number: DE-002147023-NVSC2021DE156249

PATIENT
  Sex: Female

DRUGS (5)
  1. CELECOXIB [Suspect]
     Active Substance: CELECOXIB
     Indication: Axial spondyloarthritis
     Dosage: 400 MILLIGRAM(400 MG (7 DAYS PER WEEK))
     Route: 065
     Dates: start: 20160101
  2. CELECOXIB [Suspect]
     Active Substance: CELECOXIB
     Dosage: 400 MILLIGRAM(400 MG (7 DAYS PER WEEK))
     Route: 065
     Dates: start: 20210811
  3. IBUPROFEN [Suspect]
     Active Substance: IBUPROFEN
     Indication: Axial spondyloarthritis
     Dosage: 2400 MILLIGRAM, ONCE A DAY(2400 MG, QD (7 DAYS PER WEEK))
     Route: 065
     Dates: start: 20201127, end: 20210810
  4. ERELZI [Suspect]
     Active Substance: ETANERCEPT-SZZS
     Indication: Axial spondyloarthritis
     Dosage: 50 MILLIGRAM, EVERY WEEK(50 MG, QW)
     Route: 065
     Dates: start: 20180222
  5. ETANERCEPT [Suspect]
     Active Substance: ETANERCEPT
     Indication: Axial spondyloarthritis
     Dosage: 50 MILLIGRAM, EVERY WEEK
     Route: 065
     Dates: start: 20180222

REACTIONS (22)
  - Condition aggravated [Unknown]
  - Polyarthritis [Unknown]
  - Sciatica [Recovered/Resolved]
  - Spinal cord injury [Unknown]
  - Spinal osteoarthritis [Unknown]
  - Osteoarthritis [Unknown]
  - Pain [Unknown]
  - Foot deformity [Recovered/Resolved]
  - Hiatus hernia [Unknown]
  - Haemorrhoids [Unknown]
  - Polyuria [Unknown]
  - Urge incontinence [Unknown]
  - Arthralgia [Unknown]
  - COVID-19 [Unknown]
  - Immunisation reaction [Unknown]
  - Localised infection [Unknown]
  - Synovial cyst [Unknown]
  - Alopecia [Unknown]
  - Urinary tract infection bacterial [Unknown]
  - Hypoaesthesia [Unknown]
  - Diarrhoea [Unknown]
  - Cervical radiculopathy [Unknown]

NARRATIVE: CASE EVENT DATE: 20210111
